FAERS Safety Report 12729869 (Version 5)
Quarter: 2016Q4

REPORT INFORMATION
  Report Type: Report from Study
  Country: None (occurrence: TR)
  Receive Date: 20160909
  Receipt Date: 20161212
  Transmission Date: 20170207
  Serious: Yes (Death, Hospitalization)
  Sender: FDA-Public Use
  Company Number: TR-ABBVIE-16K-161-1721080-00

PATIENT
  Age: 62 Year
  Sex: Female
  Weight: 65 kg

DRUGS (4)
  1. SEROQUEL [Concomitant]
     Active Substance: QUETIAPINE FUMARATE
     Indication: PARKINSON^S DISEASE
     Route: 048
     Dates: start: 20160905
  2. PK MERZ [Concomitant]
     Active Substance: AMANTADINE SULFATE
     Indication: PARKINSON^S DISEASE
     Dosage: 3X2
     Dates: end: 20160906
  3. SEROQUEL [Concomitant]
     Active Substance: QUETIAPINE FUMARATE
     Indication: SLEEP DISORDER
     Route: 048
     Dates: end: 20160906
  4. DUODOPA [Suspect]
     Active Substance: CARBIDOPA\LEVODOPA
     Indication: PARKINSON^S DISEASE
     Dosage: MD:7.5 ML, CD: 2 ML, EXTRA DOSE: 1 ML
     Route: 050
     Dates: start: 20140530, end: 20160906

REACTIONS (6)
  - Vein rupture [Fatal]
  - Loss of consciousness [Fatal]
  - Embolism venous [Fatal]
  - Hallucination [Fatal]
  - Vomiting [Fatal]
  - Dyspnoea [Fatal]

NARRATIVE: CASE EVENT DATE: 201609
